FAERS Safety Report 20142365 (Version 2)
Quarter: 2021Q4

REPORT INFORMATION
  Report Type: Spontaneous
  Country: JP (occurrence: JP)
  Receive Date: 20211202
  Receipt Date: 20211220
  Transmission Date: 20220303
  Serious: Yes (Disabling)
  Sender: FDA-Public Use
  Company Number: JP-MOCHP-A20214677

PATIENT
  Sex: Male

DRUGS (3)
  1. ESCITALOPRAM OXALATE [Suspect]
     Active Substance: ESCITALOPRAM OXALATE
     Indication: Insomnia
     Dosage: 5 MG, QHS
     Route: 048
     Dates: start: 20211019, end: 20211025
  2. MIRTAZAPINE [Concomitant]
     Active Substance: MIRTAZAPINE
     Indication: Product used for unknown indication
     Route: 048
     Dates: start: 20210817
  3. CLOTIAZEPAM [Concomitant]
     Active Substance: CLOTIAZEPAM
     Indication: Product used for unknown indication
     Dosage: 5 MG, QD
     Route: 048
     Dates: start: 20210817

REACTIONS (2)
  - Pain [Not Recovered/Not Resolved]
  - Off label use [Unknown]

NARRATIVE: CASE EVENT DATE: 20211020
